FAERS Safety Report 8099293-1 (Version None)
Quarter: 2012Q1

REPORT INFORMATION
  Report Type: 
  Country: None (occurrence: None)
  Receive Date: 20120129
  Receipt Date: 20111019
  Transmission Date: 20120608
  Serious: No
  Sender: FDA-Public Use
  Company Number: US-ABBOTT-11P-163-0866833-00

PATIENT
  Sex: Male
  Weight: 82.628 kg

DRUGS (3)
  1. HUMIRA [Suspect]
     Indication: ANKYLOSING SPONDYLITIS
     Dates: start: 20090101, end: 20101201
  2. NAPROXEN (ALEVE) [Concomitant]
     Indication: PAIN
  3. HUMIRA [Suspect]
     Dates: start: 20110501

REACTIONS (5)
  - ARTHRALGIA [None]
  - INCORRECT DOSE ADMINISTERED [None]
  - WRONG TECHNIQUE IN DRUG USAGE PROCESS [None]
  - NEEDLE ISSUE [None]
  - INJECTION SITE PAIN [None]
